FAERS Safety Report 12087949 (Version 1)
Quarter: 2016Q1

REPORT INFORMATION
  Report Type: Spontaneous
  Country: US (occurrence: US)
  Receive Date: 20160217
  Receipt Date: 20160217
  Transmission Date: 20160526
  Serious: No
  Sender: FDA-Public Use
  Company Number: US-ALLERGAN-1512662US

PATIENT
  Sex: Female

DRUGS (2)
  1. REFRESH                            /00007001/ [Concomitant]
     Indication: PRODUCT USED FOR UNKNOWN INDICATION
     Dosage: UNK
  2. RESTASIS [Suspect]
     Active Substance: CYCLOSPORINE
     Indication: PRODUCT USED FOR UNKNOWN INDICATION
     Dosage: UNK
     Route: 047
     Dates: start: 2012

REACTIONS (3)
  - Dacryocanaliculitis [Recovered/Resolved]
  - Lacrimal duct procedure [Not Recovered/Not Resolved]
  - Drug dose omission [Unknown]
